FAERS Safety Report 24958281 (Version 1)
Quarter: 2025Q1

REPORT INFORMATION
  Report Type: Report from Study
  Country: EG (occurrence: EG)
  Receive Date: 20250212
  Receipt Date: 20250212
  Transmission Date: 20250409
  Serious: No
  Sender: SANDOZ
  Company Number: EG-SANDOZ-SDZ2025EG008455

PATIENT
  Age: 11 Year
  Sex: Female
  Weight: 35 kg

DRUGS (1)
  1. OMNITROPE [Suspect]
     Active Substance: SOMATROPIN
     Indication: Growth hormone deficiency
     Route: 058
     Dates: start: 20220809, end: 20231226

REACTIONS (3)
  - Drug ineffective [Unknown]
  - Device use error [Unknown]
  - Device breakage [Unknown]

NARRATIVE: CASE EVENT DATE: 20231226
